FAERS Safety Report 15112213 (Version 2)
Quarter: 2019Q1

REPORT INFORMATION
  Report Type: Spontaneous
  Country: US (occurrence: US)
  Receive Date: 20180705
  Receipt Date: 20190128
  Transmission Date: 20190417
  Serious: No
  Sender: FDA-Public Use
  Company Number: US-PFIZER INC-2018270545

PATIENT
  Age: 1 Year
  Sex: Female

DRUGS (2)
  1. GENOTROPIN MQ [Suspect]
     Active Substance: SOMATROPIN
     Dosage: 0.4 MG, UNK
     Dates: start: 2015
  2. GENOTROPIN MQ [Suspect]
     Active Substance: SOMATROPIN
     Dosage: 0.6 UNK, UNK
     Dates: start: 20160413

REACTIONS (3)
  - Abdominal distension [Unknown]
  - Blood thyroid stimulating hormone decreased [Unknown]
  - Iron binding capacity total increased [Unknown]

NARRATIVE: CASE EVENT DATE: 20170217
